FAERS Safety Report 8154942-4 (Version None)
Quarter: 2012Q1

REPORT INFORMATION
  Report Type: 
  Country: None (occurrence: None)
  Receive Date: 20120221
  Receipt Date: 20120216
  Transmission Date: 20120608
  Serious: Yes (Other)
  Sender: FDA-Public Use
  Company Number: PHEH2009US07610

PATIENT
  Sex: Female

DRUGS (3)
  1. EXJADE [Suspect]
     Indication: IRON OVERLOAD
  2. EXJADE [Suspect]
     Indication: APLASTIC ANAEMIA
  3. EXJADE [Suspect]
     Indication: HAEMOGLOBINURIA
     Dosage: 1250 MG, QD
     Route: 048
     Dates: start: 20070727

REACTIONS (6)
  - LIVER DISORDER [None]
  - DYSPNOEA [None]
  - ABDOMINAL DISTENSION [None]
  - BRONCHITIS [None]
  - BACK PAIN [None]
  - ABDOMINAL PAIN LOWER [None]
